FAERS Safety Report 7765693-X (Version None)
Quarter: 2011Q3

REPORT INFORMATION
  Report Type: 
  Country: None (occurrence: None)
  Receive Date: 20110921
  Receipt Date: 20110912
  Transmission Date: 20111222
  Serious: Yes (Other)
  Sender: FDA-Public Use
  Company Number: KR-TEVA-301001ISR

PATIENT
  Age: 35 Year
  Sex: Male

DRUGS (4)
  1. MITOXANTRONE [Suspect]
  2. CYTARABINE [Suspect]
  3. VORICONAZOLE [Suspect]
     Indication: BRONCHOPULMONARY ASPERGILLOSIS
  4. ETOPOSIDE [Suspect]

REACTIONS (1)
  - PSEUDOMEMBRANOUS COLITIS [None]
